FAERS Safety Report 26049275 (Version 1)
Quarter: 2025Q4

REPORT INFORMATION
  Report Type: Spontaneous
  Country: EU (occurrence: EU)
  Receive Date: 20251115
  Receipt Date: 20251115
  Transmission Date: 20260117
  Serious: Yes (Life-Threatening, Other)
  Sender: MACLEODS
  Company Number: EU-MACLEODS PHARMA-MAC2025056330

PATIENT

DRUGS (6)
  1. LIDOCAINE [Suspect]
     Active Substance: LIDOCAINE
     Indication: Product used for unknown indication
     Dosage: LIDOCAIN 1% 20ML AND 4ML EPINEPHRINE 1/200.000
     Route: 064
  2. LIDOCAINE [Suspect]
     Active Substance: LIDOCAINE
     Dosage: 2% 10ML
     Route: 064
  3. EPINEPHRINE [Suspect]
     Active Substance: EPINEPHRINE
     Indication: Product used for unknown indication
     Dosage: 4ML EPINEPHRINE 1/200.000
     Route: 064
  4. SUFENTANIL [Suspect]
     Active Substance: SUFENTANIL
     Indication: Product used for unknown indication
     Dosage: 25 MCG
     Route: 064
  5. ROPIVACAINE [Suspect]
     Active Substance: ROPIVACAINE
     Indication: Product used for unknown indication
     Dosage: 100MG
     Route: 064
  6. SODIUM CHLORIDE [Suspect]
     Active Substance: SODIUM CHLORIDE
     Indication: Product used for unknown indication
     Dosage: 0.9 % AND 5 ML
     Route: 064

REACTIONS (10)
  - Local anaesthetic systemic toxicity [Recovered/Resolved]
  - Hypotonia [Recovered/Resolved]
  - Neonatal epileptic seizure [Recovered/Resolved]
  - Apnoea [Recovered/Resolved]
  - Mydriasis [Recovered/Resolved]
  - Muscle contractions involuntary [Recovered/Resolved]
  - Toxicity to various agents [Recovered/Resolved]
  - Pallor [Recovered/Resolved]
  - Foetal exposure during delivery [Unknown]
  - Overdose [Unknown]
